FAERS Safety Report 9717149 (Version 1)
Quarter: 2013Q4

REPORT INFORMATION
  Report Type: Spontaneous
  Country: US (occurrence: US)
  Receive Date: 20131127
  Receipt Date: 20131127
  Transmission Date: 20140711
  Serious: No
  Sender: FDA-Public Use
  Company Number: US-009507513-1311USA002150

PATIENT
  Sex: Female

DRUGS (1)
  1. NUVARING [Suspect]
     Dosage: HAS BEEN USING CONTINUOSLY FOR 5 WEEKS
     Dates: start: 201306

REACTIONS (2)
  - Incorrect drug administration duration [Unknown]
  - Metrorrhagia [Unknown]
